FAERS Safety Report 21173449 (Version 1)
Quarter: 2022Q3

REPORT INFORMATION
  Report Type: Spontaneous
  Country: US (occurrence: None)
  Receive Date: 20220804
  Receipt Date: 20220804
  Transmission Date: 20221026
  Serious: Yes (Disabling, Other)
  Sender: FDA-Public Use
  Company Number: None

PATIENT
  Age: 46 Year
  Sex: Female
  Weight: 81 kg

DRUGS (1)
  1. BUPROPION [Suspect]
     Active Substance: BUPROPION
     Indication: Depression
     Dates: start: 20220531, end: 20220801

REACTIONS (12)
  - Illness [None]
  - Malaise [None]
  - Urticaria [None]
  - Rash [None]
  - Fatigue [None]
  - Lethargy [None]
  - Swelling [None]
  - Fluid retention [None]
  - Inflammation [None]
  - Irritability [None]
  - Product substitution issue [None]
  - Anger [None]

NARRATIVE: CASE EVENT DATE: 20220523
